FAERS Safety Report 8145046-5 (Version None)
Quarter: 2012Q1

REPORT INFORMATION
  Report Type: 
  Country: None (occurrence: None)
  Receive Date: 20120217
  Receipt Date: 20120210
  Transmission Date: 20120608
  Serious: Yes (Other)
  Sender: FDA-Public Use
  Company Number: PHEH2009US00900

PATIENT
  Sex: Male
  Weight: 91.791 kg

DRUGS (38)
  1. TRIMETHOPRIM [Concomitant]
     Indication: ANTIBIOTIC PROPHYLAXIS
     Dosage: 1 DF, BID
     Dates: start: 20070622
  2. OXYCODONE HCL [Concomitant]
     Dosage: 5 MG 1-2 CAP Q 2-3 HR PRN
     Dates: start: 20070101
  3. CLINDAMYCIN [Concomitant]
     Dosage: 300 MG, TID
     Dates: start: 20061201
  4. IBUPROFEN (ADVIL) [Concomitant]
  5. DICLOFENAC [Concomitant]
  6. PREVACID [Concomitant]
  7. PENICILLIN [Concomitant]
  8. NITROGLYCERIN [Concomitant]
  9. ACETAMINOPHEN [Concomitant]
  10. ZOMETA [Suspect]
     Indication: MULTIPLE MYELOMA
     Dosage: 4 MG, QMO
     Route: 042
     Dates: start: 20030501, end: 20061101
  11. DECADRON [Concomitant]
  12. PNEUMOVAX 23 [Concomitant]
  13. LIPITOR [Concomitant]
     Dates: start: 20060101
  14. VITAMINS NOS [Concomitant]
     Dates: start: 20030101
  15. OXYCODONE HCL [Concomitant]
     Indication: PAIN
     Dosage: 40 MG, PRN
     Dates: start: 20070101
  16. DEXAMETHASONE [Concomitant]
     Indication: MULTIPLE MYELOMA
     Dosage: 4 MG, 10 TABS Q SAT
     Dates: start: 20070607
  17. PLAVIX [Concomitant]
  18. COUMADIN [Concomitant]
  19. LYRICA [Concomitant]
  20. LOVASTATIN [Concomitant]
  21. LASIX [Concomitant]
  22. ATENOLOL [Concomitant]
     Dosage: 25 MG,
     Dates: start: 20000401
  23. PRAVACHOL [Concomitant]
     Dates: start: 20000101, end: 20060101
  24. ASPIRIN [Concomitant]
     Indication: ANTICOAGULANT THERAPY
     Dosage: 325 MG,
     Dates: start: 20001101
  25. CHEMOTHERAPEUTICS NOS [Concomitant]
     Dates: start: 20060401
  26. MORPHINE [Concomitant]
     Dates: start: 20070101, end: 20070101
  27. WARFARIN [Concomitant]
     Indication: ANTICOAGULANT THERAPY
     Dosage: 2 MG, QHS
     Dates: start: 20070608
  28. XANAX [Concomitant]
  29. NAPROSYN [Concomitant]
  30. THALIDOMIDE [Concomitant]
     Dosage: 200 MG, QD
     Dates: start: 20030401, end: 20060601
  31. VELCADE [Concomitant]
  32. OMEPRAZOLE [Concomitant]
  33. REVLIMID [Concomitant]
     Indication: MULTIPLE MYELOMA
     Dosage: 25 MG, QW3
     Dates: start: 20060701
  34. VITAMIN B6 [Concomitant]
     Indication: NEUROPATHY PERIPHERAL
     Dates: start: 20060501
  35. COMPAZINE [Concomitant]
  36. PERCOCET [Concomitant]
  37. ELAVIL [Concomitant]
  38. CYCLOPHOSPHAMIDE [Concomitant]

REACTIONS (38)
  - OSTEONECROSIS OF JAW [None]
  - HYPOAESTHESIA [None]
  - HYPERLIPIDAEMIA [None]
  - BONE PAIN [None]
  - CATARACT [None]
  - OPEN WOUND [None]
  - HAEMORRHOIDS [None]
  - RECTAL HAEMORRHAGE [None]
  - NEUROPATHY PERIPHERAL [None]
  - PARAESTHESIA [None]
  - ANAEMIA [None]
  - INFECTION [None]
  - SWELLING FACE [None]
  - FASCIITIS [None]
  - OEDEMA [None]
  - ABDOMINAL DISCOMFORT [None]
  - PULMONARY EMBOLISM [None]
  - ARTERIAL DISORDER [None]
  - BLOOD PRESSURE INCREASED [None]
  - INJURY [None]
  - DEEP VEIN THROMBOSIS [None]
  - CONSTIPATION [None]
  - ANHEDONIA [None]
  - PLASMACYTOSIS [None]
  - OSTEOLYSIS [None]
  - LEUKOPENIA [None]
  - TOOTH LOSS [None]
  - PAIN [None]
  - BLOODY DISCHARGE [None]
  - OSTEOMYELITIS [None]
  - BONE DISORDER [None]
  - PAIN IN JAW [None]
  - BURSITIS [None]
  - CHEST PAIN [None]
  - HYPERCHOLESTEROLAEMIA [None]
  - SWELLING [None]
  - ANXIETY [None]
  - BOWEL MOVEMENT IRREGULARITY [None]
